FAERS Safety Report 15417811 (Version 2)
Quarter: 2018Q4

REPORT INFORMATION
  Report Type: Report from Study
  Country: VN (occurrence: VN)
  Receive Date: 20180924
  Receipt Date: 20181001
  Transmission Date: 20190204
  Serious: Yes (Death)
  Sender: FDA-Public Use
  Company Number: PHHY2018VN100503

PATIENT
  Age: 15 Year
  Sex: Male

DRUGS (1)
  1. GLIVEC [Suspect]
     Active Substance: IMATINIB MESYLATE
     Indication: ACUTE LYMPHOCYTIC LEUKAEMIA
     Dosage: 400 MG, QD
     Route: 048
     Dates: start: 20171204, end: 20180627

REACTIONS (3)
  - White blood cell count increased [Fatal]
  - Blast cell proliferation [Fatal]
  - Anaemia [Fatal]

NARRATIVE: CASE EVENT DATE: 20180625
